FAERS Safety Report 12711209 (Version 1)
Quarter: 2016Q3

REPORT INFORMATION
  Report Type: Spontaneous
  Country: FR (occurrence: FR)
  Receive Date: 20160902
  Receipt Date: 20160902
  Transmission Date: 20161109
  Serious: Yes (Death, Hospitalization, Other)
  Sender: FDA-Public Use
  Company Number: FR-BAXTER-2016BAX044563

PATIENT
  Age: 84 Year
  Sex: Male

DRUGS (5)
  1. VELCADE [Suspect]
     Active Substance: BORTEZOMIB
     Indication: PLASMA CELL LEUKAEMIA
     Dosage: FIRST COURSE OF CHEMOTHERAPY, ONCE PER CYCLE
     Route: 058
     Dates: start: 20160606
  2. DEXAMETHASONE MYLAN [Suspect]
     Active Substance: DEXAMETHASONE
     Dosage: SECOND ADMINISTRATION, ONCE PER CYCLE
     Route: 042
     Dates: start: 20160609, end: 20160609
  3. ENDOXAN 50 MG, COMPRIM? ENROB? [Suspect]
     Active Substance: CYCLOPHOSPHAMIDE
     Indication: PLASMA CELL LEUKAEMIA
     Dosage: FIRST COURSE OF CHEMOTHERAPY, SINGLE DOSE
     Route: 048
     Dates: start: 20160606, end: 20160606
  4. DEXAMETHASONE MYLAN [Suspect]
     Active Substance: DEXAMETHASONE
     Indication: PLASMA CELL LEUKAEMIA
     Dosage: DOSE STRENGTH: 20MG/5ML, FIRST COURSE OF CHEMOTHERAPY, ONCE PER CYCLE, IN AMPOULE
     Route: 042
     Dates: start: 20160606
  5. VELCADE [Suspect]
     Active Substance: BORTEZOMIB
     Dosage: SECOND ADMINISTRATION, ONCE PER CYCLE
     Route: 058
     Dates: start: 20160609, end: 20160609

REACTIONS (8)
  - Arterial injury [Unknown]
  - Mitral valve incompetence [Unknown]
  - Aortic stenosis [Unknown]
  - Cardiac arrest [Fatal]
  - Nausea [Unknown]
  - Fluid overload [Unknown]
  - Vomiting [Unknown]
  - Acute pulmonary oedema [Fatal]

NARRATIVE: CASE EVENT DATE: 201606
